FAERS Safety Report 4848461-8 (Version None)
Quarter: 2005Q4

REPORT INFORMATION
  Report Type: 
  Country: None (occurrence: None)
  Receive Date: 20051208
  Receipt Date: 20051128
  Transmission Date: 20060501
  Serious: Yes (Other)
  Sender: FDA-Public Use
  Company Number: 05-LPC-215

PATIENT
  Age: 17 Year
  Sex: Male

DRUGS (1)
  1. PARACETAMOL [Suspect]
     Indication: PAIN
     Route: 061

REACTIONS (3)
  - CAUSTIC INJURY [None]
  - INCORRECT ROUTE OF DRUG ADMINISTRATION [None]
  - TONGUE ULCERATION [None]
